FAERS Safety Report 6783172-3 (Version None)
Quarter: 2010Q2

REPORT INFORMATION
  Report Type: 
  Country: None (occurrence: None)
  Receive Date: 20100622
  Receipt Date: 20100611
  Transmission Date: 20101027
  Serious: Yes (Other)
  Sender: FDA-Public Use
  Company Number: US-PFIZER INC-2010069201

PATIENT
  Sex: Female

DRUGS (2)
  1. DETROL [Suspect]
     Dosage: UNK
  2. DARIFENACIN HYDROBROMIDE [Suspect]
     Dosage: UNK

REACTIONS (3)
  - BLADDER DISCOMFORT [None]
  - BLADDER DISORDER [None]
  - MICTURITION URGENCY [None]
